FAERS Safety Report 18678980 (Version 1)
Quarter: 2020Q4

REPORT INFORMATION
  Report Type: Spontaneous
  Country: US (occurrence: US)
  Receive Date: 20201229
  Receipt Date: 20201229
  Transmission Date: 20210114
  Serious: No
  Sender: FDA-Public Use
  Company Number: US-ELI_LILLY_AND_COMPANY-US202012013016

PATIENT
  Age: 65 Year
  Sex: Male

DRUGS (2)
  1. TAXOTERE [Concomitant]
     Active Substance: DOCETAXEL
     Indication: ADENOCARCINOMA METASTATIC
     Dosage: UNK, CYCLICAL
     Route: 065
  2. CYRAMZA [Suspect]
     Active Substance: RAMUCIRUMAB
     Indication: ADENOCARCINOMA METASTATIC
     Dosage: UNK UNK, UNKNOWN
     Route: 065

REACTIONS (1)
  - Dyskinesia [Not Recovered/Not Resolved]
